FAERS Safety Report 4772074-X (Version None)
Quarter: 2005Q3

REPORT INFORMATION
  Report Type: 
  Country: None (occurrence: None)
  Receive Date: 20050918
  Receipt Date: 20050629
  Transmission Date: 20060218
  Serious: Yes (Death)
  Sender: FDA-Public Use
  Company Number: US-MERCK-0507USA00210

PATIENT
  Age: 60 Year
  Sex: Male
  Weight: 122 kg

DRUGS (1)
  1. VIOXX [Suspect]
     Indication: BACK PAIN
     Route: 048
     Dates: start: 20000731, end: 20031101

REACTIONS (9)
  - ACUTE MYOCARDIAL INFARCTION [None]
  - BRONCHITIS [None]
  - CARDIOMEGALY [None]
  - CORONARY ARTERY ATHEROSCLEROSIS [None]
  - DEPRESSION [None]
  - GASTRITIS [None]
  - OSTEOARTHRITIS [None]
  - REMOVAL OF FOREIGN BODY FROM JOINT [None]
  - TENDON DISORDER [None]
